FAERS Safety Report 7924844-4 (Version None)
Quarter: 2011Q4

REPORT INFORMATION
  Report Type: 
  Country: None (occurrence: None)
  Receive Date: 20111118
  Receipt Date: 20111114
  Transmission Date: 20120403
  Serious: Yes (Hospitalization)
  Sender: FDA-Public Use
  Company Number: IT-BRISTOL-MYERS SQUIBB COMPANY-16197139

PATIENT
  Age: 56 Year
  Sex: Male

DRUGS (3)
  1. METOPROLOL TARTRATE [Suspect]
     Indication: ARRHYTHMIA
     Route: 048
     Dates: start: 20110902, end: 20110908
  2. ENOXAPARIN SODIUM [Suspect]
     Route: 058
     Dates: start: 20110902, end: 20110928
  3. COUMADIN [Suspect]
     Route: 048
     Dates: start: 20110902, end: 20110912

REACTIONS (1)
  - HEPATITIS ACUTE [None]
